FAERS Safety Report 8939774 (Version 1)
Quarter: 2012Q4

REPORT INFORMATION
  Report Type: 
  Country: MA (occurrence: MA)
  Receive Date: 20121203
  Receipt Date: 20121203
  Transmission Date: 20130627
  Serious: Yes (Other)
  Sender: FDA-Public Use
  Company Number: MA-COVIDIEN/TYCO HEALTHCARE/MALLINCKRODT-T201204157

PATIENT

DRUGS (1)
  1. SODIUM IODIDE (I 131) [Suspect]
     Indication: TOXIC NODULAR GOITRE
     Dosage: mean 15.92 mCi
     Route: 048

REACTIONS (1)
  - Hypothyroidism [Unknown]
